FAERS Safety Report 19611791 (Version 1)
Quarter: 2021Q3

REPORT INFORMATION
  Report Type: Spontaneous
  Country: US (occurrence: US)
  Receive Date: 20210727
  Receipt Date: 20210727
  Transmission Date: 20211014
  Serious: No
  Sender: FDA-Public Use
  Company Number: US-ORGANON-O2107USA001601

PATIENT
  Age: 37 Year
  Sex: Female

DRUGS (11)
  1. GANIRELIX ACETATE INJECTION [Suspect]
     Active Substance: GANIRELIX ACETATE
     Indication: INFERTILITY FEMALE
     Dosage: STRENGTH: 900 IU/1.08 ML, 250 MICROGRAM, QD
     Route: 058
     Dates: start: 20210412
  2. CHLORHEX GLUC ALCO [Concomitant]
     Dosage: UNK
  3. CLINDAMYCIN. [Concomitant]
     Active Substance: CLINDAMYCIN
     Dosage: UNK
  4. GONAL?F [Concomitant]
     Active Substance: FOLLITROPIN
     Dosage: UNK
  5. LETROZOLE. [Concomitant]
     Active Substance: LETROZOLE
     Dosage: UNK
  6. FOLLISTIM AQ [Suspect]
     Active Substance: FOLLITROPIN
     Indication: INFERTILITY FEMALE
     Dosage: 225 UNITS, QD
     Route: 058
     Dates: start: 20210415
  7. DOXYCYCLINE HYCLATE. [Concomitant]
     Active Substance: DOXYCYCLINE HYCLATE
     Dosage: UNK
  8. MENOPUR [Concomitant]
     Active Substance: FOLLITROPIN\LUTEINIZING HORMONE
     Dosage: UNK
  9. NORTREL [LEVONORGESTREL] [Concomitant]
     Dosage: UNK
  10. CLOBETASOL [CLOBETASOL PROPIONATE] [Concomitant]
     Dosage: UNK
  11. NOVAREL [Concomitant]
     Active Substance: CHORIOGONADOTROPIN ALFA
     Dosage: UNK

REACTIONS (1)
  - Drug hypersensitivity [Unknown]

NARRATIVE: CASE EVENT DATE: 20210714
